FAERS Safety Report 14581233 (Version 1)
Quarter: 2018Q1

REPORT INFORMATION
  Report Type: Spontaneous
  Country: US (occurrence: US)
  Receive Date: 20180228
  Receipt Date: 20180228
  Transmission Date: 20180509
  Serious: No
  Sender: FDA-Public Use
  Company Number: US-TEVA-2018-US-856874

PATIENT
  Age: 61 Year
  Sex: Female

DRUGS (3)
  1. CALCIUM [Concomitant]
     Active Substance: CALCIUM
  2. VITAMIN B [Concomitant]
     Active Substance: VITAMIN B
  3. MUCUS ER [Suspect]
     Active Substance: GUAIFENESIN
     Indication: PULMONARY CONGESTION
     Route: 048
     Dates: start: 20180127, end: 20180127

REACTIONS (5)
  - Flatulence [Unknown]
  - Vomiting [Unknown]
  - Asthenia [Unknown]
  - Diarrhoea [Unknown]
  - Drug ineffective [Unknown]
